FAERS Safety Report 17535068 (Version 1)
Quarter: 2020Q1

REPORT INFORMATION
  Report Type: Spontaneous
  Country: DE (occurrence: TR)
  Receive Date: 20200312
  Receipt Date: 20200312
  Transmission Date: 20200409
  Serious: Yes (Death, Other)
  Sender: FDA-Public Use
  Company Number: TR-ELI_LILLY_AND_COMPANY-TR202003005605

PATIENT
  Age: 69 Year
  Sex: Male

DRUGS (3)
  1. 5-FLUOROURACIL [FLUOROURACIL] [Concomitant]
     Active Substance: FLUOROURACIL
     Indication: GLOTTIS CARCINOMA
     Dosage: 1000 MG/M2, EVERY TWO WEEKS
     Route: 065
  2. ERBITUX [Suspect]
     Active Substance: CETUXIMAB
     Indication: GLOTTIS CARCINOMA
     Dosage: 500 MG/M2, EVERY TWO WEEKS
     Route: 065
  3. CISPLATIN. [Concomitant]
     Active Substance: CISPLATIN
     Indication: GLOTTIS CARCINOMA
     Dosage: 50 MG/M2, EVERY TWO WEEKS
     Route: 065

REACTIONS (4)
  - Sepsis [Fatal]
  - Septic shock [Fatal]
  - General physical health deterioration [Unknown]
  - Off label use [Unknown]
